FAERS Safety Report 16509516 (Version 1)
Quarter: 2019Q3

REPORT INFORMATION
  Report Type: Spontaneous
  Country: US (occurrence: US)
  Receive Date: 20190701
  Receipt Date: 20190701
  Transmission Date: 20191004
  Serious: Yes (Death)
  Sender: FDA-Public Use
  Company Number: None

PATIENT
  Age: 62 Year
  Sex: Female

DRUGS (1)
  1. WARFARIN [Suspect]
     Active Substance: WARFARIN

REACTIONS (4)
  - Cerebral hypoperfusion [None]
  - Brain stem syndrome [None]
  - Blood pressure increased [None]
  - Cerebral haemorrhage [None]

NARRATIVE: CASE EVENT DATE: 20190125
